FAERS Safety Report 8027962-8 (Version None)
Quarter: 2011Q4

REPORT INFORMATION
  Report Type: 
  Country: None (occurrence: None)
  Receive Date: 20111130
  Receipt Date: 20110608
  Transmission Date: 20120403
  Serious: Yes (Hospitalization)
  Sender: FDA-Public Use
  Company Number: US200906005622

PATIENT
  Age: 47 Year
  Sex: Female
  Weight: 79.8 kg

DRUGS (18)
  1. MECLIZINE [Concomitant]
  2. NEURONTIN [Concomitant]
  3. VYTORIN [Concomitant]
  4. EXENATIDE UNK STRENGTH PEN, DISPOSABLE DEVICE (EXENATIDE PEN (UNKNOWN [Concomitant]
  5. SYNTHROID [Concomitant]
  6. FERROUS SULFATE TAB [Concomitant]
  7. GABAPENTIN [Concomitant]
  8. BYETTA [Suspect]
     Dates: start: 20060714, end: 20060914
  9. XANAX [Concomitant]
  10. ASPIRIN [Concomitant]
  11. QUININE SULFATE [Concomitant]
  12. ORAL ANTIDIABETICS [Concomitant]
  13. ATENOLOL [Concomitant]
  14. ANTIBIOTICS [Concomitant]
  15. INSULIN [Concomitant]
  16. LEXAPRO [Concomitant]
  17. LEVOTHYROXINE SODIUM [Concomitant]
  18. NITROQUICK (GLYCERYL TRINITRATE) [Concomitant]

REACTIONS (4)
  - GENERAL PHYSICAL HEALTH DETERIORATION [None]
  - PANCREATITIS ACUTE [None]
  - OFF LABEL USE [None]
  - RENAL INJURY [None]
